FAERS Safety Report 6967971-0 (Version None)
Quarter: 2010Q3

REPORT INFORMATION
  Report Type: 
  Country: None (occurrence: None)
  Receive Date: 20100907
  Receipt Date: 20100827
  Transmission Date: 20110219
  Serious: Yes (Hospitalization, Disabling)
  Sender: FDA-Public Use
  Company Number: A0806114A

PATIENT
  Age: 59 Year
  Sex: Male

DRUGS (6)
  1. AVANDIA [Suspect]
     Dosage: 4MG TWICE PER DAY
     Route: 048
     Dates: start: 20010101
  2. NORVASC [Concomitant]
  3. PROZAC [Concomitant]
  4. AMARYL [Concomitant]
  5. ATENOLOL [Concomitant]
  6. DIOVAN [Concomitant]

REACTIONS (2)
  - CARDIAC FAILURE CONGESTIVE [None]
  - ISCHAEMIC STROKE [None]
